FAERS Safety Report 6347035-X (Version None)
Quarter: 2009Q3

REPORT INFORMATION
  Report Type: 
  Country: None (occurrence: None)
  Receive Date: 20090910
  Receipt Date: 20090818
  Transmission Date: 20100115
  Serious: No
  Sender: FDA-Public Use
  Company Number: US-BAYER-200929535NA

PATIENT
  Sex: Male

DRUGS (6)
  1. LEVITRA [Suspect]
     Indication: ERECTILE DYSFUNCTION
     Dates: start: 20090810
  2. COREG [Concomitant]
  3. STATIN [Concomitant]
  4. ATIVAN [Concomitant]
  5. FLOMAX [Concomitant]
  6. XANAX [Concomitant]

REACTIONS (1)
  - ERECTILE DYSFUNCTION [None]
